FAERS Safety Report 6644253-8 (Version None)
Quarter: 2010Q1

REPORT INFORMATION
  Report Type: 
  Country: None (occurrence: None)
  Receive Date: 20100304
  Receipt Date: 20090403
  Transmission Date: 20100710
  Serious: Yes (Other)
  Sender: FDA-Public Use
  Company Number: US-002716

PATIENT
  Sex: Female

DRUGS (3)
  1. ISOVUE-300 [Suspect]
     Indication: COMPUTERISED TOMOGRAM
     Dosage: 100 ML INTRAVENOUS
     Route: 042
     Dates: start: 20090327, end: 20090327
  2. ISOVUE-300 [Suspect]
     Indication: FOREIGN BODY
     Dosage: 100 ML INTRAVENOUS
     Route: 042
     Dates: start: 20090327, end: 20090327
  3. ISOVUE-300 [Suspect]
     Indication: SWELLING
     Dosage: 100 ML INTRAVENOUS
     Route: 042
     Dates: start: 20090327, end: 20090327

REACTIONS (1)
  - HYPERSENSITIVITY [None]
